FAERS Safety Report 24844998 (Version 1)
Quarter: 2025Q1

REPORT INFORMATION
  Report Type: Spontaneous
  Country: US (occurrence: US)
  Receive Date: 20250115
  Receipt Date: 20250115
  Transmission Date: 20250409
  Serious: Yes (Hospitalization)
  Sender: AMGEN
  Company Number: US-AMGEN-USASP2025006064

PATIENT
  Sex: Male

DRUGS (1)
  1. RAVICTI [Suspect]
     Active Substance: GLYCEROL PHENYLBUTYRATE
     Indication: Argininosuccinate synthetase deficiency
     Dosage: 17.5 MILLILITER, QD (TAKE 5.5MIS BY MOUTH AT BREAKFAST AND LUNCH, THEN TAKE 6.5 MIS BY MOUTH AT DINN
     Route: 048
     Dates: start: 201910

REACTIONS (1)
  - Hospitalisation [Unknown]
